FAERS Safety Report 15898774 (Version 4)
Quarter: 2019Q2

REPORT INFORMATION
  Report Type: Spontaneous
  Country: US (occurrence: US)
  Receive Date: 20190201
  Receipt Date: 20190503
  Transmission Date: 20190711
  Serious: Yes (Hospitalization, Other)
  Sender: FDA-Public Use
  Company Number: US-TEVA-2019-US-1005608

PATIENT
  Sex: Female

DRUGS (14)
  1. VITAMIN D3 [Concomitant]
     Active Substance: CHOLECALCIFEROL
  2. FUROSEMIDE. [Concomitant]
     Active Substance: FUROSEMIDE
  3. LEVOTHYROXINE. [Concomitant]
     Active Substance: LEVOTHYROXINE
  4. HYDROXYUREA. [Concomitant]
     Active Substance: HYDROXYUREA
  5. VITAMIN B COMPLEX [Concomitant]
     Active Substance: CYANOCOBALAMIN\DEXPANTHENOL\NIACINAMIDE\PYRIDOXINE HYDROCHLORIDE\RIBOFLAVIN 5^-PHOSPHATE SODIUM\THIAMINE HYDROCHLORIDE\VITAMIN B COMPLEX
  6. METOPROLOL. [Concomitant]
     Active Substance: METOPROLOL
  7. SYNRIBO [Suspect]
     Active Substance: OMACETAXINE MEPESUCCINATE
     Dosage: 2.2 MG/0.63 ML
     Dates: start: 20190416
  8. B100 COMPLEX [Concomitant]
     Active Substance: MINERALS\VITAMINS
  9. SYNRIBO [Suspect]
     Active Substance: OMACETAXINE MEPESUCCINATE
     Indication: CHRONIC MYELOID LEUKAEMIA
     Dosage: DOSAGE 2.2MG/0.63ML
     Route: 058
     Dates: start: 20181228
  10. SYNRIBO [Suspect]
     Active Substance: OMACETAXINE MEPESUCCINATE
     Dosage: DOSAGE 2.2MG/0.63ML
     Dates: start: 20190222
  11. ALLOPURINAOL [Concomitant]
  12. CLARITIN [Concomitant]
     Active Substance: LORATADINE
  13. DIGOXIN. [Concomitant]
     Active Substance: DIGOXIN
  14. POTASSIUM [Concomitant]
     Active Substance: POTASSIUM

REACTIONS (3)
  - Pneumonia [Unknown]
  - Heart valve incompetence [Not Recovered/Not Resolved]
  - Oedema [Unknown]
